FAERS Safety Report 9075433 (Version 1)
Quarter: 2013Q1

REPORT INFORMATION
  Report Type: Report from Study
  Country: US (occurrence: US)
  Receive Date: 20130129
  Receipt Date: 20130129
  Transmission Date: 20140127
  Serious: No
  Sender: FDA-Public Use
  Company Number: US-ABBOTT-12P-163-0941299-00

PATIENT
  Sex: Female
  Weight: 75.82 kg

DRUGS (5)
  1. HUMIRA 40 MG/0.8 ML PEN [Suspect]
     Indication: CROHN^S DISEASE
     Route: 058
     Dates: start: 20120426
  2. CAMILA [Concomitant]
     Indication: CONTRACEPTION
  3. NOCOR [Concomitant]
     Indication: BACK PAIN
  4. NOCOR [Concomitant]
     Indication: OSTEOPOROSIS
  5. PRENATAL VITAMINS [Concomitant]
     Indication: BREAST FEEDING

REACTIONS (1)
  - Upper respiratory tract infection [Recovered/Resolved]
